FAERS Safety Report 8078524-8 (Version None)
Quarter: 2012Q1

REPORT INFORMATION
  Report Type: 
  Country: None (occurrence: None)
  Receive Date: 20120124
  Receipt Date: 20120113
  Transmission Date: 20120608
  Serious: Yes (Other)
  Sender: FDA-Public Use
  Company Number: 2011SP055849

PATIENT
  Age: 28 Year
  Sex: Female

DRUGS (3)
  1. RIBAVIRIN [Suspect]
     Indication: PRODUCT USED FOR UNKNOWN INDICATION
  2. PEG-INTRON [Suspect]
     Indication: HEPATITIS C
     Dosage: 120 MCG, QW, SC
     Route: 058
     Dates: start: 20111025
  3. PEG-INTRON [Suspect]

REACTIONS (7)
  - ANXIETY [None]
  - WRONG TECHNIQUE IN DRUG USAGE PROCESS [None]
  - PANIC ATTACK [None]
  - FATIGUE [None]
  - INCORRECT DOSE ADMINISTERED BY DEVICE [None]
  - FEELING ABNORMAL [None]
  - PRODUCT QUALITY ISSUE [None]
